FAERS Safety Report 10231791 (Version 1)
Quarter: 2014Q2

REPORT INFORMATION
  Report Type: Spontaneous
  Country: IT (occurrence: IT)
  Receive Date: 20140612
  Receipt Date: 20140612
  Transmission Date: 20141212
  Serious: Yes (Other)
  Sender: FDA-Public Use
  Company Number: PHHY2014IT070211

PATIENT
  Age: 13 Year
  Sex: Female

DRUGS (2)
  1. ADOPORT [Suspect]
     Indication: PROPHYLAXIS AGAINST TRANSPLANT REJECTION
     Dosage: 2.4 MG, QD
     Route: 048
     Dates: start: 20140425, end: 20140511
  2. SOLU-MEDROL [Concomitant]
     Indication: LIVER TRANSPLANT REJECTION
     Dosage: 250 MG, UNK
     Route: 042
     Dates: start: 20140507, end: 20140510

REACTIONS (2)
  - Epilepsy [Recovered/Resolved]
  - Psychomotor hyperactivity [Recovered/Resolved]
